FAERS Safety Report 5019708-2 (Version None)
Quarter: 2006Q2

REPORT INFORMATION
  Report Type: 
  Country: None (occurrence: None)
  Receive Date: 20060601
  Receipt Date: 20060525
  Transmission Date: 20061013
  Serious: Yes (Hospitalization)
  Sender: FDA-Public Use
  Company Number: 2005P1000431

PATIENT
  Age: 73 Year

DRUGS (2)
  1. RETEPLASE (RETEPLASE) [Suspect]
     Indication: ACUTE MYOCARDIAL INFARCTION
  2. REOPRO [Suspect]
     Indication: ACUTE MYOCARDIAL INFARCTION

REACTIONS (5)
  - HAEMORRHAGIC STROKE [None]
  - HEADACHE [None]
  - MITRAL VALVE DISEASE [None]
  - RENAL FAILURE [None]
  - TRICUSPID VALVE DISEASE [None]
